FAERS Safety Report 10144645 (Version 1)
Quarter: 2014Q2

REPORT INFORMATION
  Report Type: Spontaneous
  Country: US (occurrence: US)
  Receive Date: 20140430
  Receipt Date: 20140430
  Transmission Date: 20141212
  Serious: No
  Sender: FDA-Public Use
  Company Number: US-SANOFI-AVENTIS-2013SA052785

PATIENT
  Sex: Male

DRUGS (2)
  1. LOVENOX [Suspect]
     Route: 065
  2. COUMADIN [Concomitant]

REACTIONS (2)
  - Productive cough [Unknown]
  - Haemoptysis [Unknown]
